FAERS Safety Report 6240635-7 (Version None)
Quarter: 2009Q2

REPORT INFORMATION
  Report Type: 
  Country: None (occurrence: None)
  Receive Date: 20090623
  Receipt Date: 20081119
  Transmission Date: 20091009
  Serious: No
  Sender: FDA-Public Use
  Company Number: US-ASTRAZENECA-2008UW25975

PATIENT
  Age: 56 Year
  Sex: Male

DRUGS (3)
  1. PULMICORT FLEXHALER [Suspect]
     Indication: DYSPNOEA
     Dosage: 180 MCG ONCE A DAY
     Route: 055
     Dates: start: 20080601
  2. INSULIN [Concomitant]
  3. WARFARIN SODIUM [Concomitant]

REACTIONS (1)
  - PAIN [None]
